FAERS Safety Report 6740215-0 (Version None)
Quarter: 2010Q2

REPORT INFORMATION
  Report Type: 
  Country: None (occurrence: None)
  Receive Date: 20100525
  Receipt Date: 20100519
  Transmission Date: 20101027
  Serious: Yes (Other)
  Sender: FDA-Public Use
  Company Number: B0616245A

PATIENT
  Sex: Male

DRUGS (4)
  1. AVODART [Suspect]
     Indication: BENIGN PROSTATIC HYPERPLASIA
     Route: 065
     Dates: start: 20081016, end: 20090906
  2. BISOPROLOL [Concomitant]
  3. LISINOPRIL [Concomitant]
  4. METFORMIN [Concomitant]

REACTIONS (2)
  - BREAST CANCER MALE [None]
  - BREAST SWELLING [None]
